FAERS Safety Report 16459455 (Version 2)
Quarter: 2019Q3

REPORT INFORMATION
  Report Type: Spontaneous
  Country: BR (occurrence: BR)
  Receive Date: 20190620
  Receipt Date: 20190717
  Transmission Date: 20191004
  Serious: Yes (Death)
  Sender: FDA-Public Use
  Company Number: BR-ROCHE-2340167

PATIENT
  Sex: Female

DRUGS (1)
  1. ACTEMRA [Suspect]
     Active Substance: TOCILIZUMAB
     Indication: RHEUMATOID ARTHRITIS
     Route: 042

REACTIONS (8)
  - Pneumonia [Fatal]
  - Cardio-respiratory arrest [Fatal]
  - Shock [Fatal]
  - Nausea [Unknown]
  - Respiratory failure [Fatal]
  - Malaise [Unknown]
  - Hypotension [Unknown]
  - Vomiting [Unknown]
